FAERS Safety Report 6019755-8 (Version None)
Quarter: 2008Q4

REPORT INFORMATION
  Report Type: 
  Country: None (occurrence: None)
  Receive Date: 20081224
  Receipt Date: 20081222
  Transmission Date: 20090506
  Serious: Yes (Hospitalization, Disabling)
  Sender: FDA-Public Use
  Company Number: ES-ASTRAZENECA-2008AC03075

PATIENT
  Age: 26 Year
  Sex: Female
  Weight: 65 kg

DRUGS (8)
  1. NAROPIN [Suspect]
     Indication: EPIDURAL ANAESTHESIA
     Route: 008
     Dates: start: 20080926, end: 20080926
  2. NAROPIN [Suspect]
     Indication: CAESAREAN SECTION
     Route: 008
     Dates: start: 20080926, end: 20080926
  3. NAROPIN [Suspect]
     Route: 008
     Dates: start: 20080926
  4. NAROPIN [Suspect]
     Route: 008
     Dates: start: 20080926
  5. NAROPIN [Suspect]
     Route: 008
     Dates: start: 20080926
  6. NAROPIN [Suspect]
     Route: 008
     Dates: start: 20080926
  7. FENTANEST [Concomitant]
     Indication: EPIDURAL ANAESTHESIA
     Route: 008
     Dates: start: 20080926
  8. MORFINA [Concomitant]
     Indication: ANALGESIA
     Route: 008
     Dates: start: 20080927

REACTIONS (2)
  - CAUDA EQUINA SYNDROME [None]
  - PARAPLEGIA [None]
